FAERS Safety Report 23785981 (Version 1)
Quarter: 2024Q2

REPORT INFORMATION
  Report Type: Spontaneous
  Country: TW (occurrence: TW)
  Receive Date: 20240426
  Receipt Date: 20240426
  Transmission Date: 20240716
  Serious: Yes (Other)
  Sender: FDA-Public Use
  Company Number: TW-TAKEDA-2024TUS038565

PATIENT
  Age: 39 Year
  Sex: Female

DRUGS (5)
  1. LEUPROLIDE ACETATE [Suspect]
     Active Substance: ISOPROPYL ALCOHOL\LEUPROLIDE ACETATE
     Indication: Product used for unknown indication
     Route: 065
  2. LEUPROLIDE ACETATE [Suspect]
     Active Substance: ISOPROPYL ALCOHOL\LEUPROLIDE ACETATE
     Route: 065
     Dates: start: 202005
  3. PALBOCICLIB [Suspect]
     Active Substance: PALBOCICLIB
     Indication: Product used for unknown indication
     Route: 065
     Dates: start: 202005
  4. LETROZOLE [Suspect]
     Active Substance: LETROZOLE
     Indication: Product used for unknown indication
     Route: 065
     Dates: start: 202005
  5. TAMOXIFEN [Suspect]
     Active Substance: TAMOXIFEN
     Indication: Product used for unknown indication
     Route: 065

REACTIONS (3)
  - Metastases to liver [Unknown]
  - Metastases to bone [Unknown]
  - Metastases to lung [Unknown]

NARRATIVE: CASE EVENT DATE: 20200501
